FAERS Safety Report 11328465 (Version 1)
Quarter: 2015Q3

REPORT INFORMATION
  Report Type: Spontaneous
  Country: US (occurrence: US)
  Receive Date: 20150731
  Receipt Date: 20150731
  Transmission Date: 20151125
  Serious: Yes (Hospitalization)
  Sender: FDA-Public Use
  Company Number: US-AKORN PHARMACEUTICALS-2015AKN00435

PATIENT
  Sex: Female
  Weight: 115.7 kg

DRUGS (18)
  1. CLINDAMYCIN [Suspect]
     Active Substance: CLINDAMYCIN\CLINDAMYCIN PHOSPHATE
     Indication: NECROTISING FASCIITIS
  2. CEFTAROLINE [Suspect]
     Active Substance: CEFTAROLINE
     Indication: ABSCESS
  3. TERBINAFINE. [Suspect]
     Active Substance: TERBINAFINE
     Dosage: UNK
  4. INSULIN [Concomitant]
     Active Substance: INSULIN NOS
  5. NITROGLYCERIN. [Concomitant]
     Active Substance: NITROGLYCERIN
  6. SIMVASTATIN. [Concomitant]
     Active Substance: SIMVASTATIN
  7. CLINDAMYCIN [Suspect]
     Active Substance: CLINDAMYCIN\CLINDAMYCIN PHOSPHATE
     Indication: CELLULITIS
     Dosage: 900 MG, 3X/DAY
  8. CLINDAMYCIN [Suspect]
     Active Substance: CLINDAMYCIN\CLINDAMYCIN PHOSPHATE
     Indication: ABSCESS
  9. CEFTAROLINE [Suspect]
     Active Substance: CEFTAROLINE
     Indication: CELLULITIS
     Dosage: 600 MG, 2X/DAY
  10. CEFTAROLINE [Suspect]
     Active Substance: CEFTAROLINE
     Indication: NECROTISING FASCIITIS
  11. DIGOXIN. [Concomitant]
     Active Substance: DIGOXIN
  12. ZOLPIDEM [Concomitant]
     Active Substance: ZOLPIDEM\ZOLPIDEM TARTRATE
  13. FUROSEMIDE. [Concomitant]
     Active Substance: FUROSEMIDE
  14. METOPROLOL [Concomitant]
     Active Substance: METOPROLOL
  15. ONDANSETRON [Concomitant]
     Active Substance: ONDANSETRON
  16. ACETAMINOPHEN. [Concomitant]
     Active Substance: ACETAMINOPHEN
  17. CLONIDINE. [Concomitant]
     Active Substance: CLONIDINE
  18. WARFARIN [Concomitant]
     Active Substance: WARFARIN

REACTIONS (2)
  - Agranulocytosis [Recovered/Resolved]
  - Abdominal pain [Recovered/Resolved]
